FAERS Safety Report 4788965-X (Version None)
Quarter: 2005Q4

REPORT INFORMATION
  Report Type: 
  Country: None (occurrence: None)
  Receive Date: 20051004
  Receipt Date: 20050926
  Transmission Date: 20060501
  Serious: Yes (Other)
  Sender: FDA-Public Use
  Company Number: CHPA2005US03194

PATIENT
  Age: 67 Year
  Sex: Male
  Weight: 86.6 kg

DRUGS (4)
  1. NICOTINE [Suspect]
     Indication: SMOKING CESSATION THERAPY
     Dosage: 14 MG, TRANSDERMAL; 1 PATCH DAILY DURING DAYTIME, TRANSDERMAL
     Route: 062
     Dates: start: 20050810, end: 20050811
  2. NICOTINE [Suspect]
     Indication: SMOKING CESSATION THERAPY
     Dosage: 14 MG, TRANSDERMAL; 1 PATCH DAILY DURING DAYTIME, TRANSDERMAL
     Route: 062
     Dates: start: 20050811, end: 20050907
  3. NICOTINE [Suspect]
     Indication: SMOKING CESSATION THERAPY
     Dosage: 1 PATCH DAILY DURING DAYTINE, TRANSDERMAL
     Route: 062
     Dates: start: 20050908, end: 20050916
  4. DRUG THERAPY NOS (DRUG THERAPY NOS) [Concomitant]

REACTIONS (5)
  - ABNORMAL DREAMS [None]
  - ANXIETY [None]
  - BLOOD PRESSURE DECREASED [None]
  - DYSPNOEA [None]
  - HEART RATE DECREASED [None]
